FAERS Safety Report 22209012 (Version 2)
Quarter: 2023Q2

REPORT INFORMATION
  Report Type: Spontaneous
  Country: US (occurrence: US)
  Receive Date: 20230413
  Receipt Date: 20230607
  Transmission Date: 20230722
  Serious: No
  Sender: FDA-Public Use
  Company Number: US-PFIZER INC-202300099476

PATIENT
  Age: 61 Year
  Sex: Male

DRUGS (1)
  1. DEPO-TESTOSTERONE [Suspect]
     Active Substance: TESTOSTERONE CYPIONATE
     Dosage: UNK, 2X/WEEK

REACTIONS (3)
  - Therapeutic product effect incomplete [Unknown]
  - Poor quality product administered [Unknown]
  - Product deposit [Unknown]
